FAERS Safety Report 21585932 (Version 4)
Quarter: 2022Q4

REPORT INFORMATION
  Report Type: Report from Study
  Country: CN (occurrence: CN)
  Receive Date: 20221111
  Receipt Date: 20221209
  Transmission Date: 20230113
  Serious: Yes (Hospitalization)
  Sender: FDA-Public Use
  Company Number: CN-BoehringerIngelheim-2022-BI-201038

PATIENT
  Age: 50 Year
  Sex: Male
  Weight: 80 kg

DRUGS (9)
  1. SPESOLIMAB [Suspect]
     Active Substance: SPESOLIMAB
     Indication: Pustular psoriasis
     Route: 042
     Dates: start: 20221026, end: 20221026
  2. SPESOLIMAB [Suspect]
     Active Substance: SPESOLIMAB
     Route: 042
     Dates: start: 20221101, end: 20221101
  3. FUROSEMIDE [Concomitant]
     Active Substance: FUROSEMIDE
     Indication: Oedema peripheral
     Dates: start: 20221024, end: 20221024
  4. FUROSEMIDE [Concomitant]
     Active Substance: FUROSEMIDE
     Route: 048
     Dates: start: 20221024, end: 20221103
  5. Cetzine hydrochloride tablets [Concomitant]
     Indication: Pustular psoriasis
     Dosage: 10 MG QN, ROUTE QN
     Dates: start: 20221027, end: 20221103
  6. SPIRONOLACTONE [Concomitant]
     Active Substance: SPIRONOLACTONE
     Indication: Oedema peripheral
     Route: 048
     Dates: start: 20221024, end: 20221103
  7. CEFUROXIME SODIUM [Concomitant]
     Active Substance: CEFUROXIME SODIUM
     Indication: Pustular psoriasis
     Route: 042
     Dates: start: 20221101, end: 20221103
  8. potassium chloride sustained release tablet [Concomitant]
     Indication: Hypokalaemia
     Dosage: SUSTAINED RELEASE TABLET
     Route: 048
     Dates: start: 20221027, end: 20221103
  9. Allantoin and vitamin cream [Concomitant]
     Indication: Pustular psoriasis
     Dosage: USE EXT
     Dates: start: 20221021, end: 20221103

REACTIONS (1)
  - Pustular psoriasis [Recovered/Resolved]

NARRATIVE: CASE EVENT DATE: 20221103
